FAERS Safety Report 15074928 (Version 1)
Quarter: 2018Q2

REPORT INFORMATION
  Report Type: Report from Study
  Country: US (occurrence: US)
  Receive Date: 20180627
  Receipt Date: 20180627
  Transmission Date: 20180711
  Serious: Yes (Other)
  Sender: FDA-Public Use
  Company Number: US-SAOL THERAPEUTICS-2017SAO01634

PATIENT
  Age: 48 Year
  Sex: Female

DRUGS (48)
  1. COMPOUNDED BACLOFEN [Suspect]
     Active Substance: BACLOFEN
     Dosage: 261.09 ?G, \DAY MAX
     Dates: start: 20170315
  2. COMPOUNDED BACLOFEN [Suspect]
     Active Substance: BACLOFEN
     Dosage: 100.09 ?G, \DAY
     Route: 037
     Dates: start: 20170822
  3. COMPOUNDED BACLOFEN [Suspect]
     Active Substance: BACLOFEN
     Dosage: 148.70 ?G, \DAY MAX
     Route: 037
     Dates: start: 20170822
  4. DILAUDID [Suspect]
     Active Substance: HYDROMORPHONE HYDROCHLORIDE
     Dosage: 1.421 MG, \DAY MAX
     Route: 037
     Dates: start: 20170124, end: 20170315
  5. DILAUDID [Suspect]
     Active Substance: HYDROMORPHONE HYDROCHLORIDE
     Dosage: 0.681 MG, \DAY
     Route: 037
     Dates: start: 20170315
  6. BUPIVACAINE. [Suspect]
     Active Substance: BUPIVACAINE
     Dosage: 15.133 MG, \DAY
     Route: 037
     Dates: start: 20170112, end: 20170124
  7. BUPIVACAINE. [Suspect]
     Active Substance: BUPIVACAINE
     Dosage: 10.215 MG, \DAY
     Route: 037
     Dates: start: 20170315
  8. BUPIVACAINE. [Suspect]
     Active Substance: BUPIVACAINE
     Dosage: 7.507 MG, \DAY
     Route: 037
     Dates: start: 20170822
  9. CLONIDINE. [Suspect]
     Active Substance: CLONIDINE
     Dosage: 201.77 ?G, \DAY
     Route: 037
     Dates: start: 20170112, end: 20170124
  10. CLONIDINE. [Suspect]
     Active Substance: CLONIDINE
     Dosage: 136.20 ?G, \DAY
     Route: 037
     Dates: start: 20170315
  11. DILAUDID [Suspect]
     Active Substance: HYDROMORPHONE HYDROCHLORIDE
     Dosage: 0.799 MG, \DAY
     Route: 037
     Dates: end: 20170822
  12. BUPIVACAINE. [Suspect]
     Active Substance: BUPIVACAINE
     Dosage: 21.319 MG, \DAY MAX
     Route: 037
     Dates: start: 20170124, end: 20170315
  13. CLONIDINE. [Suspect]
     Active Substance: CLONIDINE
     Dosage: 159.90 ?G, \DAY
     Route: 037
     Dates: end: 20170822
  14. COMPOUNDED BACLOFEN [Suspect]
     Active Substance: BACLOFEN
     Dosage: 325.21 ?G, \DAY MAX
     Route: 037
     Dates: start: 20170112, end: 20170124
  15. COMPOUNDED BACLOFEN [Suspect]
     Active Substance: BACLOFEN
     Dosage: 284.26 ?G, \DAY MAX
     Route: 037
     Dates: start: 20170124, end: 20170315
  16. DILAUDID [Suspect]
     Active Substance: HYDROMORPHONE HYDROCHLORIDE
     Dosage: 1.008 MG, \DAY
     Route: 037
     Dates: start: 20170112, end: 20170124
  17. DILAUDID [Suspect]
     Active Substance: HYDROMORPHONE HYDROCHLORIDE
     Dosage: 1.626 MG, \DAY MAX
     Route: 037
     Dates: start: 20170112, end: 20170124
  18. BUPIVACAINE. [Suspect]
     Active Substance: BUPIVACAINE
     Dosage: 11.992 MG, \DAY
     Route: 037
     Dates: start: 20170124, end: 20170315
  19. BUPIVACAINE. [Suspect]
     Active Substance: BUPIVACAINE
     Dosage: 19.582 MG, \DAY MAX
     Route: 037
     Dates: start: 20170315
  20. BUPIVACAINE. [Suspect]
     Active Substance: BUPIVACAINE
     Dosage: 11.992 MG, \DAY
     Route: 037
     Dates: end: 20170822
  21. BUPIVACAINE. [Suspect]
     Active Substance: BUPIVACAINE
     Dosage: 11.152 MG, \DAY MAX
     Route: 037
     Dates: start: 20170822
  22. COMPOUNDED BACLOFEN [Suspect]
     Active Substance: BACLOFEN
     Dosage: 201.77 ?G, \DAY
     Route: 037
     Dates: start: 20170112, end: 20170124
  23. COMPOUNDED BACLOFEN [Suspect]
     Active Substance: BACLOFEN
     Dosage: 159.90 ?G, \DAY
     Route: 037
     Dates: start: 20170124, end: 20170315
  24. DILAUDID [Suspect]
     Active Substance: HYDROMORPHONE HYDROCHLORIDE
     Dosage: 0.799 MG, \DAY
     Route: 037
     Dates: start: 20170124, end: 20170315
  25. BUPIVACAINE. [Suspect]
     Active Substance: BUPIVACAINE
     Dosage: 23.725 MG, \DAY MAX
     Route: 037
     Dates: end: 20170822
  26. CLONIDINE. [Suspect]
     Active Substance: CLONIDINE
     Dosage: 284.26 ?G, \DAY MAX
     Route: 037
     Dates: start: 20170124, end: 20170315
  27. CLONIDINE. [Suspect]
     Active Substance: CLONIDINE
     Dosage: 261.09 ?G, \DAY MAX
     Route: 037
     Dates: start: 20170315
  28. DILAUDID [Suspect]
     Active Substance: HYDROMORPHONE HYDROCHLORIDE
     Dosage: 0.899 MG, \DAY
     Route: 037
     Dates: end: 20170112
  29. DILAUDID [Suspect]
     Active Substance: HYDROMORPHONE HYDROCHLORIDE
     Dosage: 0.743 MG, \DAY MAX
     Route: 037
     Dates: start: 20170822
  30. CLONIDINE. [Suspect]
     Active Substance: CLONIDINE
     Dosage: 272.05 ?G, \DAY MAX
     Route: 037
     Dates: end: 20170112
  31. CLONIDINE. [Suspect]
     Active Substance: CLONIDINE
     Dosage: 159.90 ?G, \DAY
     Route: 037
     Dates: start: 20170124, end: 20170315
  32. CLONIDINE. [Suspect]
     Active Substance: CLONIDINE
     Dosage: 148.70 ?G, \DAY MAX
     Route: 037
     Dates: start: 20170822
  33. DILAUDID [Suspect]
     Active Substance: HYDROMORPHONE HYDROCHLORIDE
     Dosage: 0.500 MG, \DAY
     Route: 037
     Dates: start: 20170822
  34. CLONIDINE. [Suspect]
     Active Substance: CLONIDINE
     Dosage: 100.09 ?G, \DAY
     Route: 037
     Dates: start: 20170822
  35. COMPOUNDED BACLOFEN [Suspect]
     Active Substance: BACLOFEN
     Dosage: 179.88 ?G, \DAY
     Route: 037
     Dates: end: 20170112
  36. COMPOUNDED BACLOFEN [Suspect]
     Active Substance: BACLOFEN
     Dosage: 272.05 ?G, \DAY MAX
     Route: 037
     Dates: end: 20170112
  37. COMPOUNDED BACLOFEN [Suspect]
     Active Substance: BACLOFEN
     Dosage: 159.90 ?G, \DAY
     Route: 037
     Dates: end: 20170822
  38. DILAUDID [Suspect]
     Active Substance: HYDROMORPHONE HYDROCHLORIDE
     Dosage: 1.360 MG, \DAY MAX
     Route: 037
     Dates: end: 20170112
  39. DILAUDID [Suspect]
     Active Substance: HYDROMORPHONE HYDROCHLORIDE
     Dosage: 1.305 MG, \DAY MAX
     Route: 037
     Dates: start: 20170315
  40. DILAUDID [Suspect]
     Active Substance: HYDROMORPHONE HYDROCHLORIDE
     Dosage: 1.581 MG, \DAY MAX
     Route: 037
     Dates: end: 20170822
  41. CLONIDINE. [Suspect]
     Active Substance: CLONIDINE
     Dosage: 179.88 ?G, \DAY
     Route: 037
     Dates: end: 20170112
  42. CLONIDINE. [Suspect]
     Active Substance: CLONIDINE
     Dosage: 325.21 ?G, \DAY MAX
     Route: 037
     Dates: start: 20170112, end: 20170124
  43. CLONIDINE. [Suspect]
     Active Substance: CLONIDINE
     Dosage: 316.33 ?G, \DAY MAX
     Route: 037
     Dates: end: 20170822
  44. COMPOUNDED BACLOFEN [Suspect]
     Active Substance: BACLOFEN
     Dosage: 136.20 ?G, \DAY
     Dates: start: 20170315
  45. COMPOUNDED BACLOFEN [Suspect]
     Active Substance: BACLOFEN
     Dosage: 316.33 ?G, \DAY MAX
     Route: 037
     Dates: end: 20170822
  46. BUPIVACAINE. [Suspect]
     Active Substance: BUPIVACAINE
     Dosage: 13.491 MG, \DAY
     Route: 037
     Dates: end: 20170112
  47. BUPIVACAINE. [Suspect]
     Active Substance: BUPIVACAINE
     Dosage: 20.404 MG, \DAY MAX
     Route: 037
     Dates: end: 20170112
  48. BUPIVACAINE. [Suspect]
     Active Substance: BUPIVACAINE
     Dosage: 24.390 MG, \DAY MAX
     Route: 037
     Dates: start: 20170112, end: 20170124

REACTIONS (8)
  - Implant site pain [Recovered/Resolved]
  - Asthenia [Not Recovered/Not Resolved]
  - Oedema peripheral [Recovered/Resolved]
  - Urinary retention [Recovered/Resolved]
  - Muscle tightness [Recovered/Resolved]
  - Skin exfoliation [Recovered/Resolved]
  - Drug ineffective for unapproved indication [Recovered/Resolved]
  - Pain [Recovered/Resolved]

NARRATIVE: CASE EVENT DATE: 20170123
